FAERS Safety Report 4836193-1 (Version None)
Quarter: 2005Q4

REPORT INFORMATION
  Report Type: 
  Country: None (occurrence: None)
  Receive Date: 20051118
  Receipt Date: 20051104
  Transmission Date: 20060501
  Serious: Yes (Hospitalization)
  Sender: FDA-Public Use
  Company Number: 2005-0008666

PATIENT
  Age: 34 Year
  Sex: Female

DRUGS (6)
  1. EMTRIVA [Suspect]
     Indication: HIV INFECTION
     Dosage: 200 MG, 1 IN 1 D, ORAL
     Route: 048
     Dates: start: 20050623, end: 20050722
  2. VIREAD [Suspect]
     Indication: HIV INFECTION
     Dosage: 300 MG, 1 IN 1 D, ORAL
     Route: 048
     Dates: start: 20050623, end: 20050722
  3. REYATAZ [Suspect]
     Indication: HIV INFECTION
     Dosage: 150 MG, ORAL
     Route: 048
     Dates: start: 20050623, end: 20050722
  4. REYATAZ [Suspect]
     Indication: HIV INFECTION
     Dosage: 150 MG, ORAL
     Route: 048
     Dates: start: 20050901
  5. NORVIR [Suspect]
     Indication: HIV INFECTION
     Dosage: 100 MG, 1 IN 1 D, ORAL
     Route: 048
     Dates: start: 20050623, end: 20050722
  6. NORVIR [Suspect]
     Indication: HIV INFECTION
     Dosage: 100 MG, 1 IN 1 D, ORAL
     Route: 048
     Dates: start: 20050901

REACTIONS (6)
  - BULIMIA NERVOSA [None]
  - CUSHING'S SYNDROME [None]
  - HIRSUTISM [None]
  - INSOMNIA [None]
  - TACHYCARDIA [None]
  - VOMITING [None]
